FAERS Safety Report 22952618 (Version 3)
Quarter: 2024Q1

REPORT INFORMATION
  Report Type: Report from Study
  Country: US (occurrence: US)
  Receive Date: 20230918
  Receipt Date: 20240104
  Transmission Date: 20240410
  Serious: Yes (Other)
  Sender: FDA-Public Use
  Company Number: US-TAKEDA-2023TUS089255

PATIENT
  Age: 5 Year
  Sex: Male
  Weight: 16 kg

DRUGS (8)
  1. TEDUGLUTIDE [Suspect]
     Active Substance: TEDUGLUTIDE
     Indication: Short-bowel syndrome
     Dosage: 0.6 MILLIGRAM, QD
     Route: 058
     Dates: start: 20200829
  2. TEDUGLUTIDE [Suspect]
     Active Substance: TEDUGLUTIDE
     Indication: Short-bowel syndrome
     Dosage: 0.6 MILLIGRAM, QD
     Route: 058
     Dates: start: 20200829
  3. TEDUGLUTIDE [Suspect]
     Active Substance: TEDUGLUTIDE
     Indication: Short-bowel syndrome
     Dosage: 0.6 MILLIGRAM, QD
     Route: 058
     Dates: start: 20200829
  4. TEDUGLUTIDE [Suspect]
     Active Substance: TEDUGLUTIDE
     Indication: Short-bowel syndrome
     Dosage: 0.6 MILLIGRAM, QD
     Route: 058
     Dates: start: 20200829
  5. CEFTRIAXONE [Concomitant]
     Active Substance: CEFTRIAXONE\CEFTRIAXONE SODIUM
     Indication: Pyrexia
     Dosage: 800 MILLIGRAM
     Route: 042
     Dates: start: 20230425, end: 20230426
  6. HEPARIN [Concomitant]
     Active Substance: HEPARIN SODIUM
     Dosage: 30 MILLIGRAM
     Route: 042
     Dates: start: 20220817, end: 20220817
  7. FLAGYL [Concomitant]
     Active Substance: METRONIDAZOLE\METRONIDAZOLE HYDROCHLORIDE
     Indication: Gastrointestinal bacterial overgrowth
     Dosage: 2.10 MILLILITER, BID
     Route: 050
     Dates: start: 20220126
  8. FERINSOL [Concomitant]
     Indication: Iron deficiency anaemia
     Dosage: 3 MILLILITER, QD
     Route: 048
     Dates: start: 20220509

REACTIONS (1)
  - Otitis media chronic [Recovered/Resolved]

NARRATIVE: CASE EVENT DATE: 20230817
